FAERS Safety Report 21182959 (Version 1)
Quarter: 2022Q3

REPORT INFORMATION
  Report Type: Spontaneous
  Country: US (occurrence: US)
  Receive Date: 20220808
  Receipt Date: 20220808
  Transmission Date: 20221026
  Serious: No
  Sender: FDA-Public Use
  Company Number: US-BAUSCH-BL-2022-019482

PATIENT
  Sex: Female

DRUGS (2)
  1. ALTRENO [Suspect]
     Active Substance: TRETINOIN
     Indication: Ear disorder
     Route: 061
  2. ALTRENO [Suspect]
     Active Substance: TRETINOIN

REACTIONS (1)
  - Application site rash [Unknown]
